FAERS Safety Report 5070362-3 (Version None)
Quarter: 2006Q3

REPORT INFORMATION
  Report Type: 
  Country: None (occurrence: None)
  Receive Date: 20060731
  Receipt Date: 20060721
  Transmission Date: 20061208
  Serious: Yes (Life-Threatening, Disabling)
  Sender: FDA-Public Use
  Company Number: 2005018709

PATIENT
  Age: 12 Year
  Sex: Male
  Weight: 73.1 kg

DRUGS (5)
  1. GENOTROPIN [Suspect]
     Indication: HYPOPITUITARISM
     Dosage: UNK (2.2MG, 7INJ./WEEK)
     Dates: start: 20001025
  2. ANDRIOL (TESTOSTERONE UNDECANOATE) [Concomitant]
  3. LEVOTHYROXINE SODIUM [Concomitant]
  4. HYDROCORTISONE [Concomitant]
  5. MINIRIN ^AVENTIS PHARMA^ (DESMOPRESSIN ACETATE) [Concomitant]

REACTIONS (2)
  - CRANIOPHARYNGIOMA [None]
  - NEOPLASM RECURRENCE [None]
